FAERS Safety Report 5454413-X (Version None)
Quarter: 2007Q3

REPORT INFORMATION
  Report Type: 
  Country: None (occurrence: None)
  Receive Date: 20070917
  Receipt Date: 20070709
  Transmission Date: 20080115
  Serious: Yes (Other)
  Sender: FDA-Public Use
  Company Number: US-ASTRAZENECA-2006UW17193

PATIENT
  Age: 390 Month
  Sex: Female

DRUGS (4)
  1. SEROQUEL [Suspect]
     Indication: BIPOLAR DISORDER
     Route: 048
     Dates: start: 20020901, end: 20060901
  2. ZYPREXA [Suspect]
  3. ZYPREXA [Concomitant]
     Dates: start: 20010601, end: 20020601
  4. RISPERDAL [Concomitant]
     Dates: start: 20010101

REACTIONS (2)
  - DIABETES MELLITUS [None]
  - PANCREATITIS [None]
